FAERS Safety Report 25413454 (Version 1)
Quarter: 2025Q2

REPORT INFORMATION
  Report Type: Spontaneous
  Country: FR (occurrence: FR)
  Receive Date: 20250609
  Receipt Date: 20250609
  Transmission Date: 20250716
  Serious: Yes (Hospitalization)
  Sender: MYLAN
  Company Number: None

PATIENT
  Sex: Female

DRUGS (36)
  1. GABAPENTIN [Suspect]
     Active Substance: GABAPENTIN
     Indication: Neuralgia
     Dosage: 100 MILLIGRAM, Q8H
     Dates: start: 20250411, end: 20250414
  2. GABAPENTIN [Suspect]
     Active Substance: GABAPENTIN
     Dosage: 100 MILLIGRAM, Q8H
     Route: 048
     Dates: start: 20250411, end: 20250414
  3. GABAPENTIN [Suspect]
     Active Substance: GABAPENTIN
     Dosage: 100 MILLIGRAM, Q8H
     Route: 048
     Dates: start: 20250411, end: 20250414
  4. GABAPENTIN [Suspect]
     Active Substance: GABAPENTIN
     Dosage: 100 MILLIGRAM, Q8H
     Dates: start: 20250411, end: 20250414
  5. DULOXETINE [Suspect]
     Active Substance: DULOXETINE
     Indication: Neuralgia
     Dosage: 30 MILLIGRAM, QD
     Dates: start: 20250411, end: 20250414
  6. DULOXETINE [Suspect]
     Active Substance: DULOXETINE
     Dosage: 30 MILLIGRAM, QD
     Route: 048
     Dates: start: 20250411, end: 20250414
  7. DULOXETINE [Suspect]
     Active Substance: DULOXETINE
     Dosage: 30 MILLIGRAM, QD
     Route: 048
     Dates: start: 20250411, end: 20250414
  8. DULOXETINE [Suspect]
     Active Substance: DULOXETINE
     Dosage: 30 MILLIGRAM, QD
     Dates: start: 20250411, end: 20250414
  9. TRAMADOL [Suspect]
     Active Substance: TRAMADOL
     Indication: Pain
     Dates: start: 20250411, end: 20250414
  10. TRAMADOL [Suspect]
     Active Substance: TRAMADOL
     Route: 048
     Dates: start: 20250411, end: 20250414
  11. TRAMADOL [Suspect]
     Active Substance: TRAMADOL
     Route: 048
     Dates: start: 20250411, end: 20250414
  12. TRAMADOL [Suspect]
     Active Substance: TRAMADOL
     Dates: start: 20250411, end: 20250414
  13. AMITRIPTYLINE [Suspect]
     Active Substance: AMITRIPTYLINE
     Indication: Neuralgia
     Dates: start: 20250411, end: 20250414
  14. AMITRIPTYLINE [Suspect]
     Active Substance: AMITRIPTYLINE
     Route: 048
     Dates: start: 20250411, end: 20250414
  15. AMITRIPTYLINE [Suspect]
     Active Substance: AMITRIPTYLINE
     Route: 048
     Dates: start: 20250411, end: 20250414
  16. AMITRIPTYLINE [Suspect]
     Active Substance: AMITRIPTYLINE
     Dates: start: 20250411, end: 20250414
  17. APIXABAN [Concomitant]
     Active Substance: APIXABAN
  18. APIXABAN [Concomitant]
     Active Substance: APIXABAN
     Route: 065
  19. APIXABAN [Concomitant]
     Active Substance: APIXABAN
     Route: 065
  20. APIXABAN [Concomitant]
     Active Substance: APIXABAN
  21. BISOPROLOL FUMARATE [Concomitant]
     Active Substance: BISOPROLOL FUMARATE
  22. BISOPROLOL FUMARATE [Concomitant]
     Active Substance: BISOPROLOL FUMARATE
     Route: 065
  23. BISOPROLOL FUMARATE [Concomitant]
     Active Substance: BISOPROLOL FUMARATE
     Route: 065
  24. BISOPROLOL FUMARATE [Concomitant]
     Active Substance: BISOPROLOL FUMARATE
  25. EVEROLIMUS [Concomitant]
     Active Substance: EVEROLIMUS
  26. EVEROLIMUS [Concomitant]
     Active Substance: EVEROLIMUS
     Route: 065
  27. EVEROLIMUS [Concomitant]
     Active Substance: EVEROLIMUS
     Route: 065
  28. EVEROLIMUS [Concomitant]
     Active Substance: EVEROLIMUS
  29. LEVOTHYROXINE SODIUM [Concomitant]
     Active Substance: LEVOTHYROXINE SODIUM
  30. LEVOTHYROXINE SODIUM [Concomitant]
     Active Substance: LEVOTHYROXINE SODIUM
     Route: 065
  31. LEVOTHYROXINE SODIUM [Concomitant]
     Active Substance: LEVOTHYROXINE SODIUM
     Route: 065
  32. LEVOTHYROXINE SODIUM [Concomitant]
     Active Substance: LEVOTHYROXINE SODIUM
  33. INSULIN GLARGINE [Concomitant]
     Active Substance: INSULIN GLARGINE
  34. INSULIN GLARGINE [Concomitant]
     Active Substance: INSULIN GLARGINE
     Route: 065
  35. INSULIN GLARGINE [Concomitant]
     Active Substance: INSULIN GLARGINE
     Route: 065
  36. INSULIN GLARGINE [Concomitant]
     Active Substance: INSULIN GLARGINE

REACTIONS (2)
  - Condition aggravated [Recovering/Resolving]
  - Mixed liver injury [Recovering/Resolving]

NARRATIVE: CASE EVENT DATE: 20250414
